FAERS Safety Report 13348138 (Version 1)
Quarter: 2017Q1

REPORT INFORMATION
  Report Type: Spontaneous
  Country: CN (occurrence: CN)
  Receive Date: 20170318
  Receipt Date: 20170318
  Transmission Date: 20170428
  Serious: Yes (Hospitalization, Disabling)
  Sender: FDA-Public Use
  Company Number: CN-JNJFOC-20170305438

PATIENT
  Age: 4 Day
  Sex: Male
  Weight: 2.6 kg

DRUGS (2)
  1. MOTRIN [Suspect]
     Active Substance: IBUPROFEN
     Route: 045
  2. MOTRIN [Suspect]
     Active Substance: IBUPROFEN
     Indication: NEONATAL ASPIRATION
     Route: 045
     Dates: start: 20170103, end: 20170106

REACTIONS (3)
  - Off label use [Recovering/Resolving]
  - Gastrointestinal haemorrhage [Recovering/Resolving]
  - Product use issue [Recovering/Resolving]

NARRATIVE: CASE EVENT DATE: 20170103
